FAERS Safety Report 7896645-7 (Version None)
Quarter: 2011Q4

REPORT INFORMATION
  Report Type: 
  Country: None (occurrence: None)
  Receive Date: 20111107
  Receipt Date: 20111028
  Transmission Date: 20120403
  Serious: No
  Sender: FDA-Public Use
  Company Number: US-BIOGENIDEC-2011BI005073

PATIENT
  Age: 42 Year
  Sex: Female

DRUGS (7)
  1. TRILEPTAL [Concomitant]
     Indication: PAIN
  2. HYDROCODONE BITARTRATE [Concomitant]
     Indication: PAIN
  3. ULTRAM [Concomitant]
     Indication: PAIN
  4. NEUROTNIN [Concomitant]
     Indication: PAIN
  5. TYSABRI [Suspect]
     Indication: MULTIPLE SCLEROSIS
     Route: 042
     Dates: start: 20071108
  6. BACLOFEN [Concomitant]
     Indication: PAIN
  7. VICOPROFEN [Concomitant]
     Indication: PAIN

REACTIONS (5)
  - MEMORY IMPAIRMENT [None]
  - COGNITIVE DISORDER [None]
  - STRESS [None]
  - DYSARTHRIA [None]
  - BALANCE DISORDER [None]
